FAERS Safety Report 17170347 (Version 1)
Quarter: 2019Q4

REPORT INFORMATION
  Report Type: Spontaneous
  Country: FR (occurrence: FR)
  Receive Date: 20191218
  Receipt Date: 20191218
  Transmission Date: 20200122
  Serious: Yes (Hospitalization)
  Sender: FDA-Public Use
  Company Number: FR-PFIZER INC-2019540502

PATIENT
  Age: 33 Year
  Sex: Male

DRUGS (5)
  1. OXAZEPAM. [Suspect]
     Active Substance: OXAZEPAM
     Dosage: 1 DF, AS NEEDED
     Dates: start: 2006
  2. BUPRENORPHINE. [Suspect]
     Active Substance: BUPRENORPHINE
     Dosage: 16 MG, 1X/DAY
     Route: 042
     Dates: start: 2005
  3. BROMAZEPAM [Suspect]
     Active Substance: BROMAZEPAM
     Dosage: 1 DF, AS NEEDED
     Dates: start: 2006
  4. NEO CODION [Suspect]
     Active Substance: CODEINE\GRINDELIA HIRSUTULA WHOLE\SULFOGAIACOL
     Dosage: 1 DF, AS NEEDED
     Route: 042
     Dates: start: 2005
  5. ALPRAZOLAM. [Suspect]
     Active Substance: ALPRAZOLAM
     Dosage: 1 DF, AS NEEDED
     Dates: start: 2006

REACTIONS (1)
  - Drug use disorder [Recovering/Resolving]

NARRATIVE: CASE EVENT DATE: 2005
